FAERS Safety Report 7942657-4 (Version None)
Quarter: 2011Q4

REPORT INFORMATION
  Report Type: 
  Country: None (occurrence: None)
  Receive Date: 20111122
  Receipt Date: 20110812
  Transmission Date: 20120403
  Serious: Yes (Hospitalization)
  Sender: FDA-Public Use
  Company Number: PHHY2011US55764

PATIENT
  Age: 39 Year
  Sex: Female

DRUGS (5)
  1. ABILIFY [Concomitant]
  2. GILENYA [Suspect]
     Indication: MULTIPLE SCLEROSIS
     Dosage: ORAL
     Route: 048
     Dates: start: 20110101, end: 20110501
  3. ZOLOFT [Concomitant]
  4. COGITUM (FURCTOSE, POTASSIUM ACETYLASPARGINATE) [Concomitant]
  5. BACLOFEN [Concomitant]

REACTIONS (7)
  - BLISTER [None]
  - SUNBURN [None]
  - MULTIPLE SCLEROSIS RELAPSE [None]
  - CENTRAL NERVOUS SYSTEM LESION [None]
  - APHASIA [None]
  - LOSS OF CONSCIOUSNESS [None]
  - CONVULSION [None]
